FAERS Safety Report 13462706 (Version 1)
Quarter: 2017Q2

REPORT INFORMATION
  Report Type: Spontaneous
  Country: US (occurrence: US)
  Receive Date: 20170420
  Receipt Date: 20170420
  Transmission Date: 20170830
  Serious: Yes (Other)
  Sender: FDA-Public Use
  Company Number: US-ASTRAZENECA-2017SE39353

PATIENT
  Age: 59 Year
  Sex: Male
  Weight: 72.6 kg

DRUGS (10)
  1. PULMICORT TURBUHALER [Suspect]
     Active Substance: BUDESONIDE
     Indication: ASTHMA
     Dosage: 180 MCG 1 INHALATION TWICE PER DAY
     Route: 055
     Dates: start: 2007
  2. AZOPT [Concomitant]
     Active Substance: BRINZOLAMIDE
     Indication: GLAUCOMA
     Route: 047
     Dates: start: 2009
  3. CITALOPRAM [Concomitant]
     Active Substance: CITALOPRAM HYDROBROMIDE
     Indication: MOOD ALTERED
     Route: 048
     Dates: start: 2009
  4. DILTIAZEM. [Concomitant]
     Active Substance: DILTIAZEM
     Indication: BLOOD PRESSURE MEASUREMENT
     Route: 048
     Dates: start: 2012
  5. PROAIR RESCUE INHALER [Concomitant]
     Dosage: AS REQUIRED
     Route: 055
  6. PULMICORT TURBUHALER [Suspect]
     Active Substance: BUDESONIDE
     Indication: NASOPHARYNGITIS
     Dosage: 180 MCG 1 INHALATION TWICE PER DAY
     Route: 055
     Dates: start: 2007
  7. LUMIGAN [Concomitant]
     Active Substance: BIMATOPROST
     Indication: GLAUCOMA
     Route: 047
     Dates: start: 2009
  8. BETAXOLOL. [Concomitant]
     Active Substance: BETAXOLOL
     Indication: GLAUCOMA
     Route: 047
     Dates: start: 2009
  9. PREDNISONE. [Concomitant]
     Active Substance: PREDNISONE
     Indication: INFLAMMATION
     Dosage: 1 DROP PER EYE ONCE A DAY
     Route: 047
     Dates: start: 2009
  10. SINGULAIR [Concomitant]
     Active Substance: MONTELUKAST SODIUM
     Indication: ASTHMA
     Route: 048
     Dates: start: 2012

REACTIONS (12)
  - Eye disorder [Unknown]
  - Glaucoma [Unknown]
  - Intentional product use issue [Unknown]
  - Ocular hyperaemia [Unknown]
  - Product use in unapproved indication [Unknown]
  - Inguinal hernia [Unknown]
  - Loss of personal independence in daily activities [Unknown]
  - Retinal tear [Unknown]
  - Retinal detachment [Not Recovered/Not Resolved]
  - Ear disorder [Unknown]
  - Ear pain [Unknown]
  - Off label use [Unknown]

NARRATIVE: CASE EVENT DATE: 2007
